FAERS Safety Report 10064331 (Version 2)
Quarter: 2014Q2

REPORT INFORMATION
  Report Type: Spontaneous
  Country: JP (occurrence: None)
  Receive Date: 20140404
  Receipt Date: 20140430
  Transmission Date: 20141212
  Serious: No
  Sender: FDA-Public Use
  Company Number: B0979626A

PATIENT
  Age: 84 Year
  Sex: Male
  Weight: 127.6 kg

DRUGS (9)
  1. REMIFENTANIL HCL [Suspect]
     Indication: ANALGESIC THERAPY
     Dosage: 13ML/TWENTY FOUR TIMES PER DAY
     Dates: start: 20140313, end: 20140313
  2. FENTANYL CITRATE [Suspect]
     Indication: PRODUCT USED FOR UNKNOWN INDICATION
     Route: 042
     Dates: start: 20140313
  3. NIFEDIPINE [Suspect]
     Indication: HYPERTENSION
     Route: 048
     Dates: start: 20140310
  4. PAROXETINE HYDROCHLORIDE [Suspect]
     Indication: DEPRESSION
     Route: 048
     Dates: start: 20140310
  5. CARBAMAZEPINE [Suspect]
     Indication: PRODUCT USED FOR UNKNOWN INDICATION
     Dates: start: 20140310
  6. ETIZOLAM [Suspect]
     Indication: DEPRESSION
     Route: 048
     Dates: start: 20140310
  7. PROPIVERINE HYDROCHLORIDE [Suspect]
     Indication: PRODUCT USED FOR UNKNOWN INDICATION
     Route: 048
     Dates: start: 20140310
  8. TAMSULOSIN HCL [Suspect]
     Indication: PRODUCT USED FOR UNKNOWN INDICATION
     Route: 048
     Dates: end: 20140315
  9. MAGNESIUM OXIDE [Suspect]
     Indication: PRODUCT USED FOR UNKNOWN INDICATION
     Route: 048

REACTIONS (6)
  - Eye movement disorder [None]
  - Blood pressure systolic increased [None]
  - Hypoaesthesia [None]
  - Musculoskeletal stiffness [None]
  - Depressed level of consciousness [None]
  - Tonic convulsion [None]
